FAERS Safety Report 7906065-4 (Version None)
Quarter: 2011Q4

REPORT INFORMATION
  Report Type: 
  Country: None (occurrence: None)
  Receive Date: 20111110
  Receipt Date: 20111110
  Transmission Date: 20120403
  Serious: Yes (Other)
  Sender: FDA-Public Use
  Company Number: None

PATIENT
  Age: 54 Year
  Sex: Female
  Weight: 86.182 kg

DRUGS (2)
  1. ZYFLO CR [Suspect]
     Indication: BRONCHIAL HYPERREACTIVITY
     Dosage: 2 TABS
     Route: 048
  2. ZYFLO CR [Suspect]
     Indication: ASTHMA
     Dosage: 2 TABS
     Route: 048

REACTIONS (6)
  - DECREASED ACTIVITY [None]
  - MOOD ALTERED [None]
  - EXERCISE TOLERANCE DECREASED [None]
  - PRODUCT FORMULATION ISSUE [None]
  - ARTHRALGIA [None]
  - TREATMENT FAILURE [None]
